FAERS Safety Report 7135237-4 (Version None)
Quarter: 2010Q4

REPORT INFORMATION
  Report Type: 
  Country: None (occurrence: None)
  Receive Date: 20101203
  Receipt Date: 20101123
  Transmission Date: 20110411
  Serious: Yes (Hospitalization)
  Sender: FDA-Public Use
  Company Number: A0765771A

PATIENT
  Age: 58 Year
  Sex: Female
  Weight: 110.5 kg

DRUGS (26)
  1. AVANDIA [Suspect]
     Dosage: 4MG TWICE PER DAY
     Route: 048
     Dates: start: 20040101, end: 20070601
  2. NEXIUM [Concomitant]
  3. ALTACE [Concomitant]
  4. SYNTHROID [Concomitant]
  5. ROBINUL FORTE [Concomitant]
  6. GLUCOPHAGE [Concomitant]
  7. BENTYL [Concomitant]
  8. ZANAFLEX [Concomitant]
  9. COREG [Concomitant]
  10. NEURONTIN [Concomitant]
  11. PAMELOR [Concomitant]
  12. EFFEXOR [Concomitant]
  13. VERELAN [Concomitant]
  14. WELLBUTRIN [Concomitant]
  15. BENTYL [Concomitant]
  16. COZAAR [Concomitant]
  17. PROTONIX [Concomitant]
  18. LASIX [Concomitant]
  19. NORTRIPTYLINE HCL [Concomitant]
  20. INDERAL [Concomitant]
  21. LOMOTIL [Concomitant]
  22. PHENERGAN [Concomitant]
  23. IMITREX [Concomitant]
  24. MIDRIN [Concomitant]
  25. DARVOCET [Concomitant]
  26. MEDROL [Concomitant]

REACTIONS (4)
  - ACUTE PULMONARY OEDEMA [None]
  - CARDIAC DISORDER [None]
  - CARDIAC FAILURE CONGESTIVE [None]
  - CARDIOMYOPATHY [None]
